FAERS Safety Report 16533900 (Version 1)
Quarter: 2019Q3

REPORT INFORMATION
  Report Type: Spontaneous
  Country: US (occurrence: US)
  Receive Date: 20190704
  Receipt Date: 20190704
  Transmission Date: 20191004
  Serious: No
  Sender: FDA-Public Use
  Company Number: US-MTPC-MTDA2019-0059879

PATIENT

DRUGS (1)
  1. RADICAVA [Suspect]
     Active Substance: EDARAVONE
     Indication: AMYOTROPHIC LATERAL SCLEROSIS
     Dosage: 60 MILLIGRAM, STANDARD DOSING 14 DAYS OFF
     Route: 065

REACTIONS (4)
  - Vein rupture [Not Recovered/Not Resolved]
  - Injection site pain [Recovering/Resolving]
  - Inflammation [Recovering/Resolving]
  - Vasodilatation [Not Recovered/Not Resolved]
